FAERS Safety Report 4603170-5 (Version None)
Quarter: 2005Q1

REPORT INFORMATION
  Report Type: 
  Country: None (occurrence: None)
  Receive Date: 20050307
  Receipt Date: 20050218
  Transmission Date: 20050727
  Serious: Yes (Other)
  Sender: FDA-Public Use
  Company Number: BR-2005-002484

PATIENT
  Age: 47 Year
  Sex: Female

DRUGS (4)
  1. BETASERON [Suspect]
     Indication: MULTIPLE SCLEROSIS
     Dosage: 8 MIU, EVERY 2D, SUBCUTANEOUS
     Route: 058
     Dates: start: 20030101
  2. PROPRANOLOL [Concomitant]
  3. MINIPRESS [Concomitant]
  4. CAPOTEN [Concomitant]

REACTIONS (4)
  - CHOKING [None]
  - INJECTION SITE NECROSIS [None]
  - ISCHAEMIC CEREBRAL INFARCTION [None]
  - URINARY TRACT INFECTION [None]
